FAERS Safety Report 19297814 (Version 1)
Quarter: 2021Q2

REPORT INFORMATION
  Report Type: Spontaneous
  Country: HR (occurrence: HR)
  Receive Date: 20210525
  Receipt Date: 20210525
  Transmission Date: 20210717
  Serious: Yes (Death, Hospitalization, Other)
  Sender: FDA-Public Use
  Company Number: HR-ABBVIE-21K-216-3916846-00

PATIENT
  Sex: Female

DRUGS (1)
  1. VENCLYXTO [Suspect]
     Active Substance: VENETOCLAX
     Indication: CHRONIC LYMPHOCYTIC LEUKAEMIA
     Dosage: RAMP?UP DOSAGE TILL 400 MG
     Route: 048
     Dates: start: 20200302, end: 20200406

REACTIONS (6)
  - Altered state of consciousness [Fatal]
  - Respiratory disorder [Unknown]
  - Pneumonia [Unknown]
  - Progressive multifocal leukoencephalopathy [Fatal]
  - Immunodeficiency [Unknown]
  - Cytomegalovirus infection [Unknown]

NARRATIVE: CASE EVENT DATE: 202004
